FAERS Safety Report 10688075 (Version 1)
Quarter: 2014Q4

REPORT INFORMATION
  Report Type: Spontaneous
  Country: US (occurrence: None)
  Receive Date: 20141231
  Receipt Date: 20141231
  Transmission Date: 20150529
  Serious: Yes (Other)
  Sender: FDA-Public Use
  Company Number: None

PATIENT
  Age: 70 Year
  Sex: Female
  Weight: 81.65 kg

DRUGS (1)
  1. FLUOXETINE [Suspect]
     Active Substance: FLUOXETINE\FLUOXETINE HYDROCHLORIDE
     Indication: DEPRESSION
     Dosage: 1X PILL
     Route: 048
     Dates: start: 20140303, end: 20141230

REACTIONS (5)
  - Discomfort [None]
  - Nasal mucosal disorder [None]
  - Drug ineffective [None]
  - Burning sensation [None]
  - Product physical issue [None]

NARRATIVE: CASE EVENT DATE: 20141230
